FAERS Safety Report 5774003-9 (Version None)
Quarter: 2008Q2

REPORT INFORMATION
  Report Type: 
  Country: None (occurrence: None)
  Receive Date: 20080616
  Receipt Date: 20080603
  Transmission Date: 20081010
  Serious: Yes (Death, Life-Threatening, Other)
  Sender: FDA-Public Use
  Company Number: FR-ROCHE-559292

PATIENT
  Age: 76 Year
  Sex: Female

DRUGS (2)
  1. XELODA [Suspect]
     Indication: BREAST CANCER
     Route: 048
     Dates: start: 20080107, end: 20080122
  2. SINTROM [Suspect]
     Route: 048
     Dates: end: 20080128

REACTIONS (13)
  - BLOOD CULTURE POSITIVE [None]
  - BRADYCARDIA [None]
  - CARDIAC ARREST [None]
  - COLITIS [None]
  - COMA [None]
  - DRUG INTERACTION [None]
  - FUNGAL INFECTION [None]
  - GASTROINTESTINAL HAEMORRHAGE [None]
  - LEUKOPENIA [None]
  - NEUTROPENIA [None]
  - OESOPHAGEAL ULCER [None]
  - PNEUMONIA [None]
  - THROMBOCYTOPENIA [None]
